FAERS Safety Report 8747733 (Version 2)
Quarter: 2013Q2

REPORT INFORMATION
  Report Type: Report from Study
  Country: MX (occurrence: MX)
  Receive Date: 20120827
  Receipt Date: 20130515
  Transmission Date: 20140414
  Serious: Yes (Death, Other)
  Sender: FDA-Public Use
  Company Number: PHHY2012MX073648

PATIENT
  Age: 68 Year
  Sex: Female

DRUGS (1)
  1. CO-DIOVAN [Suspect]
     Indication: HYPERTENSION
     Dosage: 1 DF, (160 MG VALS AND 12.5 MG HCTZ), DAILY
     Route: 048

REACTIONS (4)
  - Cardiac arrest [Fatal]
  - Depression [Fatal]
  - Myocardial infarction [Unknown]
  - Syncope [Unknown]
